FAERS Safety Report 12092040 (Version 2)
Quarter: 2016Q1

REPORT INFORMATION
  Report Type: Spontaneous
  Country: US (occurrence: US)
  Receive Date: 20160219
  Receipt Date: 20160323
  Transmission Date: 20160526
  Serious: Yes (Hospitalization)
  Sender: FDA-Public Use
  Company Number: US-ROCHE-1712124

PATIENT
  Age: 69 Year
  Sex: Male

DRUGS (2)
  1. RITUXAN [Suspect]
     Active Substance: RITUXIMAB
     Indication: B-CELL LYMPHOMA
     Dosage: PATIENT HAD RECEIVED TOTALLY 6 CYCLES OF RITUXIMAB
     Route: 042
     Dates: start: 20131219, end: 20140514
  2. BENDAMUSTINE [Suspect]
     Active Substance: BENDAMUSTINE
     Indication: B-CELL LYMPHOMA
     Dosage: RECEIVED ON DAY 1 AND DAY 2 OF EACH CYCLE, RECEIVED TOTALLY 6 CYCLES.
     Route: 065

REACTIONS (1)
  - Progressive multifocal leukoencephalopathy [Recovering/Resolving]
